FAERS Safety Report 5489844-5 (Version None)
Quarter: 2007Q4

REPORT INFORMATION
  Report Type: 
  Country: None (occurrence: None)
  Receive Date: 20071017
  Receipt Date: 20071017
  Transmission Date: 20080405
  Serious: No
  Sender: FDA-Public Use
  Company Number: None

PATIENT
  Age: 56 Year
  Sex: Female

DRUGS (1)
  1. CYMBALTA [Suspect]
     Dates: start: 20060525, end: 20060804

REACTIONS (16)
  - ABDOMINAL DISCOMFORT [None]
  - ALANINE AMINOTRANSFERASE INCREASED [None]
  - ASPARTATE AMINOTRANSFERASE INCREASED [None]
  - BLOOD ALKALINE PHOSPHATASE INCREASED [None]
  - CERULOPLASMIN INCREASED [None]
  - CHEST PAIN [None]
  - DRUG INTERACTION [None]
  - DRUG TOXICITY [None]
  - HEPATIC NECROSIS [None]
  - HEPATOBILIARY DISEASE [None]
  - JAUNDICE [None]
  - LIVER INJURY [None]
  - NAUSEA [None]
  - NO THERAPEUTIC RESPONSE [None]
  - PSEUDOMONONUCLEOSIS [None]
  - RENAL FAILURE ACUTE [None]
